FAERS Safety Report 16286294 (Version 6)
Quarter: 2019Q3

REPORT INFORMATION
  Report Type: Spontaneous
  Country: US (occurrence: US)
  Receive Date: 20190508
  Receipt Date: 20190917
  Transmission Date: 20191004
  Serious: No
  Sender: FDA-Public Use
  Company Number: US-PFIZER INC-2019137544

PATIENT
  Age: 58 Year
  Sex: Female
  Weight: 53 kg

DRUGS (1)
  1. IBRANCE [Suspect]
     Active Substance: PALBOCICLIB
     Indication: BONE CANCER
     Dosage: UNK UNK, CYCLIC (ONCE DAILY)
     Route: 048
     Dates: start: 201812

REACTIONS (8)
  - Off label use [Unknown]
  - Visual impairment [Unknown]
  - Pain [Unknown]
  - Malaise [Unknown]
  - Somnolence [Unknown]
  - Product use in unapproved indication [Unknown]
  - Fatigue [Unknown]
  - Decreased appetite [Unknown]

NARRATIVE: CASE EVENT DATE: 201812
